FAERS Safety Report 17802554 (Version 1)
Quarter: 2020Q2

REPORT INFORMATION
  Report Type: Spontaneous
  Country: US (occurrence: US)
  Receive Date: 20200519
  Receipt Date: 20200519
  Transmission Date: 20200714
  Serious: No
  Sender: FDA-Public Use
  Company Number: US-NOVEN PHARMACEUTICALS, INC.-US2020000210

PATIENT

DRUGS (3)
  1. DAYTRANA [Suspect]
     Active Substance: METHYLPHENIDATE
     Indication: ATTENTION DEFICIT HYPERACTIVITY DISORDER
     Dosage: 40 MG (20 MG + 20 MG), UNKNOWN
     Route: 062
     Dates: start: 2015, end: 2017
  2. DAYTRANA [Suspect]
     Active Substance: METHYLPHENIDATE
     Dosage: 20 MG, UNK
     Route: 062
     Dates: start: 20200305
  3. DAYTRANA [Suspect]
     Active Substance: METHYLPHENIDATE
     Dosage: 35 MG (20 MG + 15 MG), UNKNOWN
     Route: 062
     Dates: start: 2017, end: 20200304

REACTIONS (2)
  - Off label use [Recovered/Resolved]
  - Decreased appetite [Recovered/Resolved]

NARRATIVE: CASE EVENT DATE: 2015
